FAERS Safety Report 18517718 (Version 1)
Quarter: 2020Q4

REPORT INFORMATION
  Report Type: Spontaneous
  Country: GB (occurrence: GB)
  Receive Date: 20201118
  Receipt Date: 20201118
  Transmission Date: 20210114
  Serious: Yes (Other)
  Sender: FDA-Public Use
  Company Number: GB-TEVA-2020-GB-1849378

PATIENT
  Age: 57 Year
  Sex: Female
  Weight: 57.15 kg

DRUGS (4)
  1. TRAMADOL. [Concomitant]
     Active Substance: TRAMADOL
  2. DOXYCYCLINE. [Suspect]
     Active Substance: DOXYCYCLINE
     Indication: SINUSITIS
     Dosage: 2 WITH WATER ON THE FIRST DAY, AND THEREAFTER ONE A DAY. 100 MG
     Route: 048
     Dates: start: 20201021, end: 20201021
  3. TRAMADOL. [Concomitant]
     Active Substance: TRAMADOL
     Dosage: 50 MG
  4. ATORVASTATIN [Concomitant]
     Active Substance: ATORVASTATIN
     Dosage: 10 MG

REACTIONS (5)
  - Vomiting [Not Recovered/Not Resolved]
  - Feeling cold [Unknown]
  - Rash [Not Recovered/Not Resolved]
  - Headache [Recovering/Resolving]
  - Chills [Unknown]

NARRATIVE: CASE EVENT DATE: 20201021
